FAERS Safety Report 7829533-2 (Version None)
Quarter: 2011Q4

REPORT INFORMATION
  Report Type: 
  Country: None (occurrence: None)
  Receive Date: 20111020
  Receipt Date: 20111018
  Transmission Date: 20120403
  Serious: Yes (Disabling)
  Sender: FDA-Public Use
  Company Number: US-MERCK-1110USA02565

PATIENT
  Age: 49 Year
  Sex: Male

DRUGS (6)
  1. JANUVIA [Suspect]
     Route: 048
     Dates: start: 20110401
  2. ASPIRIN [Concomitant]
     Route: 065
  3. HYDROCHLOROTHIAZIDE AND LISINOPRIL [Concomitant]
     Route: 065
  4. METFORMIN [Concomitant]
     Route: 065
  5. AMLODIPINE [Concomitant]
     Route: 065
  6. FOLBIC [Concomitant]
     Route: 065

REACTIONS (10)
  - DIZZINESS [None]
  - HEART RATE INCREASED [None]
  - ASTHENIA [None]
  - FEAR [None]
  - BLOOD GLUCOSE INCREASED [None]
  - SOMNOLENCE [None]
  - HYPERHIDROSIS [None]
  - CONFUSIONAL STATE [None]
  - FEELING ABNORMAL [None]
  - IRRITABILITY [None]
